FAERS Safety Report 9636381 (Version 2)
Quarter: 2013Q4

REPORT INFORMATION
  Report Type: Report from Study
  Country: DE (occurrence: DE)
  Receive Date: 20131021
  Receipt Date: 20131021
  Transmission Date: 20140711
  Serious: Yes (Hospitalization)
  Sender: FDA-Public Use
  Company Number: DE-US-EMD SERONO, INC.-7233459

PATIENT
  Age: 56 Year
  Sex: Male

DRUGS (1)
  1. REBIF [Suspect]
     Indication: MULTIPLE SCLEROSIS
     Route: 058
     Dates: start: 200802

REACTIONS (3)
  - Staphylococcal infection [Recovered/Resolved with Sequelae]
  - Injection site abscess [Recovered/Resolved with Sequelae]
  - Pyrexia [Recovering/Resolving]
